FAERS Safety Report 7918404 (Version 6)
Quarter: 2013Q4

REPORT INFORMATION
  Report Type: Report from Study
  Country: IT (occurrence: IT)
  Receive Date: 20110428
  Receipt Date: 20131113
  Transmission Date: 20140711
  Serious: Yes (Hospitalization, Other)
  Sender: FDA-Public Use
  Company Number: IT-ROCHE-772191

PATIENT
  Age: 75 Year
  Sex: Male
  Weight: 58 kg

DRUGS (2)
  1. PEG-INTERFERON ALFA 2A [Suspect]
     Indication: HEPATITIS C
     Route: 058
     Dates: start: 20101105, end: 20110413
  2. RIBAVIRIN [Suspect]
     Indication: HEPATITIS C
     Dosage: DRUG NAME REPORTED AS COPEGUS.
     Route: 065
     Dates: start: 20101105, end: 20110413

REACTIONS (3)
  - Dyspnoea [Unknown]
  - Arrhythmia [Unknown]
  - Ventricular hypokinesia [Recovering/Resolving]
